FAERS Safety Report 9189655 (Version 3)
Quarter: 2013Q4

REPORT INFORMATION
  Report Type: Spontaneous
  Country: US (occurrence: None)
  Receive Date: 20120703
  Receipt Date: 20131226
  Transmission Date: 20140711
  Serious: Yes (Hospitalization, Other)
  Sender: FDA-Public Use
  Company Number: PHEH2012US007121

PATIENT
  Age: 48 Year
  Sex: Female

DRUGS (2)
  1. GILENYA (FINGOLIMOD) CAPSULE, 0.5MG [Suspect]
     Indication: MULTIPLE SCLEROSIS
     Route: 048
     Dates: start: 201107, end: 201203
  2. STEROID NOS (NO INGREDIENTS/SUBSTANCES) [Concomitant]

REACTIONS (2)
  - Hypertension [None]
  - Cardiac disorder [None]
